FAERS Safety Report 21039352 (Version 2)
Quarter: 2022Q3

REPORT INFORMATION
  Report Type: Spontaneous
  Country: US (occurrence: US)
  Receive Date: 20220704
  Receipt Date: 20220708
  Transmission Date: 20221027
  Serious: No
  Sender: FDA-Public Use
  Company Number: US-ELI_LILLY_AND_COMPANY-US202207000172

PATIENT
  Sex: Female

DRUGS (6)
  1. HUMALOG KWIKPEN [Suspect]
     Active Substance: INSULIN LISPRO
     Indication: Type 1 diabetes mellitus
     Dosage: 13 U, DAILY
     Route: 065
     Dates: start: 202101
  2. HUMALOG KWIKPEN [Suspect]
     Active Substance: INSULIN LISPRO
     Dosage: 13 U, DAILY
     Route: 065
     Dates: start: 202101
  3. HUMALOG KWIKPEN [Suspect]
     Active Substance: INSULIN LISPRO
     Dosage: 13 U, DAILY
     Route: 065
     Dates: start: 202101
  4. HUMALOG KWIKPEN [Suspect]
     Active Substance: INSULIN LISPRO
     Dosage: 13 U, DAILY
     Route: 065
     Dates: start: 202101
  5. HUMALOG [Suspect]
     Active Substance: INSULIN LISPRO
     Indication: Product used for unknown indication
     Dosage: UNK UNK, UNKNOWN
     Route: 065
  6. LANTUS [Concomitant]
     Active Substance: INSULIN GLARGINE
     Indication: Type 1 diabetes mellitus
     Dosage: 40 U, DAILY
     Route: 065
     Dates: start: 202101

REACTIONS (5)
  - Blood glucose increased [Unknown]
  - Confusional state [Unknown]
  - Weight decreased [Unknown]
  - Injection site bruising [Unknown]
  - Incorrect dose administered [Unknown]
